FAERS Safety Report 24002634 (Version 3)
Quarter: 2024Q3

REPORT INFORMATION
  Report Type: Spontaneous
  Country: HU (occurrence: HU)
  Receive Date: 20240623
  Receipt Date: 20240718
  Transmission Date: 20241017
  Serious: Yes (Other)
  Sender: ASTELLAS
  Company Number: HU-VELOXIS PHARMACEUTICALS, INC.-2024-VEL-00334

PATIENT
  Age: 52 Year
  Sex: Male

DRUGS (5)
  1. TACROLIMUS [Suspect]
     Active Substance: TACROLIMUS
     Indication: Prophylaxis against graft versus host disease
     Dosage: UNK UNK, UNKNOWN FREQ.
     Route: 065
  2. CYCLOPHOSPHAMIDE [Concomitant]
     Active Substance: CYCLOPHOSPHAMIDE
     Indication: Prophylaxis against graft versus host disease
     Dosage: UNK UNK, UNKNOWN FREQ.
     Route: 065
  3. MYCOPHENOLATE MOFETIL [Concomitant]
     Active Substance: MYCOPHENOLATE MOFETIL
     Indication: Prophylaxis against graft versus host disease
     Dosage: UNK UNK, UNKNOWN FREQ.
     Route: 065
  4. Fludarabine;Melphalan [Concomitant]
     Indication: Stem cell transplant
     Dosage: UNK UNK, UNKNOWN FREQ.
     Route: 065
  5. THIOTEPA [Concomitant]
     Active Substance: THIOTEPA
     Indication: Stem cell transplant
     Dosage: UNK UNK, UNKNOWN FREQ.
     Route: 065

REACTIONS (3)
  - Bacteraemia [Recovered/Resolved]
  - Systemic mycosis [Recovered/Resolved]
  - Off label use [Unknown]
